FAERS Safety Report 25859040 (Version 1)
Quarter: 2025Q3

REPORT INFORMATION
  Report Type: Spontaneous
  Country: US (occurrence: None)
  Receive Date: 20250929
  Receipt Date: 20250929
  Transmission Date: 20251021
  Serious: Yes (Hospitalization)
  Sender: FDA-CTU
  Company Number: None

PATIENT
  Sex: Female

DRUGS (9)
  1. VYNDAMAX [Suspect]
     Active Substance: TAFAMIDIS
     Indication: Acquired ATTR amyloidosis
     Dosage: FREQUENCY : DAILY;?
     Route: 048
     Dates: start: 20250211
  2. ALLOPURINOL [Concomitant]
     Active Substance: ALLOPURINOL
  3. ASPIRIN [Concomitant]
     Active Substance: ASPIRIN
  4. CALCITRIOL SOL 1 MCG/ML [Concomitant]
  5. CALCIUM 600 TAB +D [Concomitant]
  6. CARVEDILOL [Concomitant]
     Active Substance: CARVEDILOL
  7. IRON TAB 45MG [Concomitant]
  8. LASIX TAB 20MG [Concomitant]
  9. VITAMIN D CAP 400UNIT [Concomitant]

REACTIONS (3)
  - Fall [None]
  - Limb injury [None]
  - Dyspnoea [None]
